FAERS Safety Report 7316460-2 (Version None)
Quarter: 2011Q1

REPORT INFORMATION
  Report Type: 
  Country: None (occurrence: None)
  Receive Date: 20110225
  Receipt Date: 20110218
  Transmission Date: 20110831
  Serious: Yes (Hospitalization)
  Sender: FDA-Public Use
  Company Number: US-US-EMD SERONO, INC.-7043357

PATIENT
  Sex: Female
  Weight: 95 kg

DRUGS (2)
  1. REBIF [Suspect]
     Route: 058
     Dates: start: 20110113
  2. REBIF [Suspect]
     Indication: PRODUCT USED FOR UNKNOWN INDICATION
     Route: 058
     Dates: start: 20030101, end: 20090201

REACTIONS (4)
  - CELLULITIS [None]
  - ANAEMIA [None]
  - THROMBOSIS [None]
  - HEPATIC ENZYME INCREASED [None]
